FAERS Safety Report 8242492-6 (Version None)
Quarter: 2012Q1

REPORT INFORMATION
  Report Type: 
  Country: None (occurrence: None)
  Receive Date: 20120329
  Receipt Date: 20120320
  Transmission Date: 20120608
  Serious: Yes (Other)
  Sender: FDA-Public Use
  Company Number: US-BAYER-2011-020336

PATIENT
  Age: 37 Year
  Sex: Female
  Weight: 110 kg

DRUGS (4)
  1. ANTIBIOTICS [Concomitant]
  2. ZITHROMAX [Concomitant]
     Dosage: 250 MG, UNK
     Dates: start: 20051005
  3. ALBUTEROL [Concomitant]
     Dosage: 90 MCG, UNK
     Route: 048
     Dates: start: 20051005
  4. YASMIN [Suspect]
     Dosage: UNK
     Route: 048
     Dates: start: 20050701, end: 20051101

REACTIONS (3)
  - BUDD-CHIARI SYNDROME [None]
  - PAIN [None]
  - INJURY [None]
